FAERS Safety Report 16764438 (Version 1)
Quarter: 2019Q3

REPORT INFORMATION
  Report Type: Spontaneous
  Country: US (occurrence: US)
  Receive Date: 20190902
  Receipt Date: 20190902
  Transmission Date: 20191005
  Serious: Yes (Other)
  Sender: FDA-Public Use
  Company Number: US-ROCHE-2393331

PATIENT
  Age: 33 Year
  Sex: Male

DRUGS (4)
  1. OXYMETHOLONE [Concomitant]
     Active Substance: OXYMETHOLONE
  2. SOMATROPIN. [Suspect]
     Active Substance: SOMATROPIN
     Indication: PRODUCT USED FOR UNKNOWN INDICATION
     Route: 065
  3. TESTOSTERONE. [Concomitant]
     Active Substance: TESTOSTERONE
  4. STANOZOLOL [Concomitant]
     Active Substance: STANOZOLOL

REACTIONS (1)
  - Aortic aneurysm [Unknown]
